FAERS Safety Report 5804913-5 (Version None)
Quarter: 2008Q3

REPORT INFORMATION
  Report Type: 
  Country: None (occurrence: None)
  Receive Date: 20080709
  Receipt Date: 20080707
  Transmission Date: 20090109
  Serious: Yes (Death, Life-Threatening, Hospitalization, Other)
  Sender: FDA-Public Use
  Company Number: PHFR2000GB01993

PATIENT
  Sex: Male

DRUGS (3)
  1. CLOZARIL [Suspect]
     Indication: SCHIZOPHRENIA
     Dosage: 650MG/DAY
     Route: 048
     Dates: start: 19951016, end: 20001121
  2. LITHIUM CARBONATE [Concomitant]
  3. CITALOPRAM HYDROBROMIDE [Concomitant]

REACTIONS (9)
  - ABDOMINAL ABSCESS [None]
  - ABDOMINAL PAIN [None]
  - APPENDICITIS PERFORATED [None]
  - CONSTIPATION [None]
  - LOSS OF CONSCIOUSNESS [None]
  - OBSTRUCTION [None]
  - PERITONITIS [None]
  - RENAL FAILURE ACUTE [None]
  - SEPSIS [None]
